FAERS Safety Report 5858239-4 (Version None)
Quarter: 2008Q3

REPORT INFORMATION
  Report Type: 
  Country: None (occurrence: None)
  Receive Date: 20080826
  Receipt Date: 20080819
  Transmission Date: 20090109
  Serious: Yes (Death)
  Sender: FDA-Public Use
  Company Number: A0739625A

PATIENT
  Age: 67 Year
  Sex: Female

DRUGS (2)
  1. SERETIDE [Suspect]
     Indication: DRUG USE FOR UNKNOWN INDICATION
     Route: 055
     Dates: start: 20071101, end: 20080718
  2. ANTINEOPLASTIC DRUGS [Suspect]

REACTIONS (1)
  - OVERDOSE [None]
